FAERS Safety Report 13614516 (Version 1)
Quarter: 2017Q2

REPORT INFORMATION
  Report Type: Spontaneous
  Country: US (occurrence: US)
  Receive Date: 20170606
  Receipt Date: 20170606
  Transmission Date: 20170830
  Serious: No
  Sender: FDA-Public Use
  Company Number: US-VIIV HEALTHCARE LIMITED-US2017GSK083513

PATIENT
  Sex: Male

DRUGS (1)
  1. COMBIVIR [Suspect]
     Active Substance: LAMIVUDINE\ZIDOVUDINE
     Dosage: 300 MG, UNK

REACTIONS (4)
  - Viral upper respiratory tract infection [Unknown]
  - Cough [Unknown]
  - Increased upper airway secretion [Unknown]
  - Seasonal allergy [Unknown]
